FAERS Safety Report 23134902 (Version 1)
Quarter: 2023Q4

REPORT INFORMATION
  Report Type: Report from Study
  Country: NL (occurrence: NL)
  Receive Date: 20231101
  Receipt Date: 20231101
  Transmission Date: 20240109
  Serious: Yes (Other)
  Sender: FDA-Public Use
  Company Number: NL-UCBSA-2023051238

PATIENT

DRUGS (5)
  1. CERTOLIZUMAB PEGOL [Suspect]
     Active Substance: CERTOLIZUMAB PEGOL
     Indication: Rheumatoid arthritis
     Dosage: LOADING DOSE 400 MILLIGRAM AT 0, 2, AND 4 WEEKS
     Route: 058
  2. CERTOLIZUMAB PEGOL [Suspect]
     Active Substance: CERTOLIZUMAB PEGOL
     Dosage: 200 MILLIGRAM, EV 2 WEEKS(QOW)
     Route: 058
  3. METHOTREXATE [Suspect]
     Active Substance: METHOTREXATE
     Indication: Rheumatoid arthritis
     Dosage: ON DAY 1 (INITIALLY 10-15 MG ORALLY ADMINISTERED)
     Route: 048
  4. METHOTREXATE [Suspect]
     Active Substance: METHOTREXATE
     Dosage: 25 MILLIGRAM, WEEKLY (QW)
  5. FOLATE SODIUM [Concomitant]
     Active Substance: FOLATE SODIUM
     Indication: Supplementation therapy
     Dosage: MINIMUM 5 MG/WEEK

REACTIONS (13)
  - Neutropenia [Unknown]
  - Leukopenia [Unknown]
  - Interstitial lung disease [Unknown]
  - Nausea [Unknown]
  - Alanine aminotransferase increased [Unknown]
  - Hepatic enzyme increased [Unknown]
  - Headache [Unknown]
  - Fatigue [Unknown]
  - Oral disorder [Unknown]
  - Diarrhoea [Unknown]
  - Rash [Unknown]
  - Alopecia [Unknown]
  - Upper respiratory tract infection [Unknown]
